FAERS Safety Report 8051420-8 (Version None)
Quarter: 2012Q1

REPORT INFORMATION
  Report Type: 
  Country: None (occurrence: None)
  Receive Date: 20120117
  Receipt Date: 20120109
  Transmission Date: 20120608
  Serious: Yes (Other)
  Sender: FDA-Public Use
  Company Number: US-ASTRAZENECA-2012SE01639

PATIENT
  Age: 54 Year
  Sex: Female
  Weight: 80.7 kg

DRUGS (10)
  1. LEVOCETRIZINE [Concomitant]
     Indication: HYPERSENSITIVITY
  2. NORETHINDRONE [Concomitant]
     Indication: PROGESTERONE ABNORMAL
  3. LEVOTHYROXINE SODIUM [Concomitant]
     Indication: THYROID DISORDER
  4. AMBIEN [Concomitant]
     Indication: INSOMNIA
  5. NEXIUM [Suspect]
     Indication: GASTROOESOPHAGEAL REFLUX DISEASE
     Route: 048
  6. PRILOSEC [Suspect]
     Route: 048
  7. SINGULAIR [Concomitant]
     Indication: HYPERSENSITIVITY
  8. ESTRADERM [Concomitant]
     Indication: OESTROGEN THERAPY
  9. PRILOSEC OTC [Suspect]
     Route: 048
  10. TOPAMAX [Concomitant]
     Indication: MIGRAINE

REACTIONS (7)
  - GASTROOESOPHAGEAL REFLUX DISEASE [None]
  - MALAISE [None]
  - ABDOMINAL PAIN UPPER [None]
  - GASTROINTESTINAL INJURY [None]
  - ABDOMINAL DISCOMFORT [None]
  - INAPPROPRIATE SCHEDULE OF DRUG ADMINISTRATION [None]
  - GASTRIC CANCER [None]
